FAERS Safety Report 9492210 (Version 3)
Quarter: 2013Q3

REPORT INFORMATION
  Report Type: Report from Study
  Country: SE (occurrence: SE)
  Receive Date: 20130830
  Receipt Date: 20130910
  Transmission Date: 20140515
  Serious: Yes (Hospitalization)
  Sender: FDA-Public Use
  Company Number: SE-BAXTER-2013BAX031049

PATIENT
  Age: 41 Year
  Sex: Female
  Weight: 90 kg

DRUGS (6)
  1. VON WILLEBRAND FACTOR_1300 IU/VIAL_POWDER FOR SOLUTION FOR INFUSION_VI [Suspect]
     Indication: HAEMORRHAGE
     Route: 042
     Dates: start: 20130729, end: 20130729
  2. VON WILLEBRAND FACTOR_1300 IU/VIAL_POWDER FOR SOLUTION FOR INFUSION_VI [Suspect]
     Indication: VON WILLEBRAND^S DISEASE
  3. VON WILLEBRAND FACTOR_1300 IU/VIAL_POWDER FOR SOLUTION FOR INFUSION_VI [Suspect]
     Indication: HAEMORRHAGE
     Route: 042
     Dates: start: 20130729, end: 20130729
  4. VON WILLEBRAND FACTOR_1300 IU/VIAL_POWDER FOR SOLUTION FOR INFUSION_VI [Suspect]
     Indication: VON WILLEBRAND^S DISEASE
  5. TRANEXAMIC ACID [Suspect]
     Indication: HAEMORRHAGE
     Dosage: 1 GRAM X3
     Route: 048
     Dates: start: 20130729, end: 20130729
  6. TRANEXAMIC ACID [Suspect]
     Indication: VON WILLEBRAND^S DISEASE

REACTIONS (2)
  - Abortion spontaneous [Recovered/Resolved]
  - Exposure during pregnancy [Recovered/Resolved]
